FAERS Safety Report 9157052 (Version 2)
Quarter: 2013Q1

REPORT INFORMATION
  Report Type: Spontaneous
  Country: GB (occurrence: None)
  Receive Date: 20130212
  Receipt Date: 20130215
  Transmission Date: 20140127
  Serious: Yes (Other)
  Sender: FDA-Public Use
  Company Number: AUR-APL-2013-01272

PATIENT
  Sex: Female
  Weight: 66.67 kg

DRUGS (1)
  1. CITALOPRAM [Suspect]
     Indication: PRODUCT USED FOR UNKNOWN INDICATION

REACTIONS (6)
  - Anxiety [None]
  - Altered state of consciousness [None]
  - Jaw disorder [None]
  - Bruxism [None]
  - Feeling abnormal [None]
  - Ocular icterus [None]
